FAERS Safety Report 5210432-X (Version None)
Quarter: 2007Q1

REPORT INFORMATION
  Report Type: 
  Country: None (occurrence: None)
  Receive Date: 20070117
  Receipt Date: 20070109
  Transmission Date: 20070707
  Serious: Yes (Hospitalization)
  Sender: FDA-Public Use
  Company Number: HU-BAYER-200710164GDS

PATIENT
  Age: 43 Year
  Sex: Male

DRUGS (8)
  1. AVELOX [Suspect]
     Indication: PNEUMONIA
     Dosage: TOTAL DAILY DOSE: 400 MG  UNIT DOSE: 400 MG
     Route: 048
     Dates: start: 20070102, end: 20070105
  2. RUBOPHEN [Suspect]
     Indication: PYREXIA
     Route: 048
     Dates: start: 20070102, end: 20070105
  3. OLICARD [Concomitant]
     Indication: CORONARY ARTERY DISEASE
     Route: 048
     Dates: end: 20070106
  4. BETALOC [Concomitant]
     Indication: HYPERTENSION
     Route: 048
  5. ASPIRIN [Concomitant]
     Indication: CORONARY ARTERY DISEASE
     Route: 048
     Dates: end: 20070106
  6. RENITEC [ENALAPRIL] [Concomitant]
     Indication: HYPERTENSION
     Route: 048
     Dates: end: 20070106
  7. NORVASC [Concomitant]
     Indication: HYPERTENSION
     Route: 048
     Dates: end: 20070106
  8. PANANGIN (POTASSIUM/MAGNESIUM ASPARTATE) [Concomitant]
     Indication: CORONARY ARTERY DISEASE

REACTIONS (4)
  - ANAPHYLACTOID REACTION [None]
  - ERYTHEMA MULTIFORME [None]
  - HYPOTENSION [None]
  - MALAISE [None]
